FAERS Safety Report 10043207 (Version 1)
Quarter: 2014Q1

REPORT INFORMATION
  Report Type: Spontaneous
  Country: US (occurrence: None)
  Receive Date: 20140327
  Receipt Date: 20140327
  Transmission Date: 20141002
  Serious: Yes (Other)
  Sender: FDA-Public Use
  Company Number: None

PATIENT
  Age: 63 Year
  Sex: Female
  Weight: 74.84 kg

DRUGS (1)
  1. DULOXETINE [Suspect]
     Indication: OCCIPITAL NEURALGIA
     Dosage: 1 CAPSULE
     Dates: start: 20140326, end: 20140326

REACTIONS (3)
  - Headache [None]
  - Product substitution issue [None]
  - Drug dose omission [None]
